FAERS Safety Report 16590370 (Version 1)
Quarter: 2019Q3

REPORT INFORMATION
  Report Type: Spontaneous
  Country: US (occurrence: US)
  Receive Date: 20190717
  Receipt Date: 20190717
  Transmission Date: 20191004
  Serious: Yes (Life-Threatening, Hospitalization)
  Sender: FDA-Public Use
  Company Number: None

PATIENT
  Age: 46 Year
  Sex: Male
  Weight: 128.9 kg

DRUGS (6)
  1. CYANOCOBALAMIN 1000 MCG TAB [Concomitant]
  2. LISINOPRIL-HYDROCHLOROTHIAZIDE 20-25 MG TAB [Concomitant]
  3. MAGNESIUM OXIDE 400 MG TAB [Concomitant]
  4. NEBIVOLOL 20 MG TAB [Concomitant]
  5. SYNJARDY [Suspect]
     Active Substance: EMPAGLIFLOZIN\METFORMIN HYDROCHLORIDE
     Indication: TYPE 2 DIABETES MELLITUS
     Route: 048
     Dates: start: 20190627, end: 20190714
  6. FENOFIBRATE 134 MG CAP [Concomitant]

REACTIONS (2)
  - Decreased appetite [None]
  - Euglycaemic diabetic ketoacidosis [None]

NARRATIVE: CASE EVENT DATE: 20190715
